FAERS Safety Report 6667074-9 (Version None)
Quarter: 2010Q2

REPORT INFORMATION
  Report Type: 
  Country: None (occurrence: None)
  Receive Date: 20100402
  Receipt Date: 20100402
  Transmission Date: 20101027
  Serious: No
  Sender: FDA-Public Use
  Company Number: None

PATIENT
  Age: 6 Month
  Sex: Female
  Weight: 6.3504 kg

DRUGS (1)
  1. FLUOCINOLONE ACETONIDE OIL [Suspect]
     Indication: PRURITUS
     Dosage: VERY SMALL AMOUNT ON WET SKIN TWICE A DAY TOP
     Route: 061
     Dates: start: 20100325, end: 20100401

REACTIONS (3)
  - ACNE [None]
  - BLISTER [None]
  - RASH [None]
